FAERS Safety Report 7118198-3 (Version None)
Quarter: 2010Q4

REPORT INFORMATION
  Report Type: 
  Country: None (occurrence: None)
  Receive Date: 20101123
  Receipt Date: 20100312
  Transmission Date: 20110411
  Serious: No
  Sender: FDA-Public Use
  Company Number: US-MYLANLABS-2010S1004472

PATIENT
  Age: 77 Year
  Sex: Male

DRUGS (1)
  1. DOXAZOSIN TABLETS [Suspect]
     Indication: BENIGN PROSTATIC HYPERPLASIA
     Route: 048
     Dates: start: 20091201, end: 20100128

REACTIONS (4)
  - BLOOD PRESSURE INCREASED [None]
  - DYSURIA [None]
  - LOSS OF LIBIDO [None]
  - RAYNAUD'S PHENOMENON [None]
